FAERS Safety Report 17151569 (Version 2)
Quarter: 2019Q4

REPORT INFORMATION
  Report Type: Spontaneous
  Country: RU (occurrence: RU)
  Receive Date: 20191213
  Receipt Date: 20191224
  Transmission Date: 20200122
  Serious: Yes (Hospitalization)
  Sender: FDA-Public Use
  Company Number: NVSC2019RU067222

PATIENT
  Age: 13 Month
  Sex: Female

DRUGS (2)
  1. AMOXICILLIN. [Suspect]
     Active Substance: AMOXICILLIN
     Indication: TONSILLITIS
     Dosage: UNK
     Route: 048
  2. CEFIXIME. [Suspect]
     Active Substance: CEFIXIME
     Indication: TONSILLITIS
     Dosage: UNK
     Route: 065

REACTIONS (14)
  - Generalised tonic-clonic seizure [Unknown]
  - Brain oedema [Unknown]
  - Coma [Unknown]
  - Neutrophilia [Unknown]
  - Otitis media [Unknown]
  - Leukocytosis [Unknown]
  - Hypertonia [Unknown]
  - Pyrexia [Not Recovered/Not Resolved]
  - Bradypnoea [Unknown]
  - Pleocytosis [Unknown]
  - Stupor [Unknown]
  - Intracranial pressure increased [Unknown]
  - Sopor [Unknown]
  - Hyperaemia [Unknown]

NARRATIVE: CASE EVENT DATE: 20171009
